FAERS Safety Report 5117099-X (Version None)
Quarter: 2006Q3

REPORT INFORMATION
  Report Type: 
  Country: None (occurrence: None)
  Receive Date: 20060925
  Receipt Date: 20060913
  Transmission Date: 20061208
  Serious: Yes (Death, Life-Threatening)
  Sender: FDA-Public Use
  Company Number: 2006JP002362

PATIENT
  Age: 79 Year
  Sex: Male
  Weight: 37.4 kg

DRUGS (10)
  1. FUNGUARD [Suspect]
     Indication: BRONCHOPULMONARY ASPERGILLOSIS
     Dosage: 225 MG, UID/QD, IV DRIP
     Route: 041
     Dates: start: 20050407, end: 20050414
  2. RINDERON (BETAMETHASONE VALERATE) INJECTION [Suspect]
     Dosage: 4 MG,
  3. NEOPHYLLIN (AMINOPHYLLINE) INJECTION [Concomitant]
  4. TIENAM (IMIPENEM, CILASTATIN SODIUM) INJECTION [Concomitant]
  5. MUCODYNE (CARBOCISTEINE) PER ORAL NOS [Concomitant]
  6. MUCOSOLVAN (AMBROXOL HYDROCHLORIDE) PER ORAL NOS [Concomitant]
  7. SLO-BID PER ORAL NOS [Concomitant]
  8. ERYTHROCIN (ERYTHROMYCIN STEARATE) PER ORAL NOS [Concomitant]
  9. HOKUNALIN (TULOBUTEROL HYDROCHLORIDE) TAPE [Concomitant]
  10. GASTER INJECTION [Concomitant]

REACTIONS (3)
  - GASTROINTESTINAL HAEMORRHAGE [None]
  - GASTROINTESTINAL ULCER [None]
  - PERITONITIS [None]
